FAERS Safety Report 7445020-8 (Version None)
Quarter: 2011Q2

REPORT INFORMATION
  Report Type: 
  Country: None (occurrence: None)
  Receive Date: 20110429
  Receipt Date: 20110419
  Transmission Date: 20111010
  Serious: Yes (Hospitalization)
  Sender: FDA-Public Use
  Company Number: FR-ACTELION-A-CH2011-47785

PATIENT
  Age: 91 Year
  Sex: Male

DRUGS (9)
  1. ALPRAZOLAM [Concomitant]
  2. SEROPLEX [Concomitant]
  3. TOPALGIC [Concomitant]
  4. ACUPAN [Concomitant]
  5. COLCHICINE W/PAPAVER SOM LA/TIEMONIUM METHYLS [Concomitant]
  6. EFFERALGAN [Concomitant]
  7. TRACLEER [Suspect]
     Indication: SKIN ULCER
     Dosage: 125 MG, UNK
     Route: 048
  8. NEXIUM [Concomitant]
  9. LYRICA [Concomitant]

REACTIONS (4)
  - ALANINE AMINOTRANSFERASE INCREASED [None]
  - LIVER FUNCTION TEST ABNORMAL [None]
  - BLOOD CREATINE PHOSPHOKINASE INCREASED [None]
  - ASPARTATE AMINOTRANSFERASE INCREASED [None]
